FAERS Safety Report 20681206 (Version 1)
Quarter: 2022Q2

REPORT INFORMATION
  Report Type: Spontaneous
  Country: US (occurrence: US)
  Receive Date: 20220406
  Receipt Date: 20220406
  Transmission Date: 20220721
  Serious: No
  Sender: FDA-Public Use
  Company Number: US-SA-SAC20220401001445

PATIENT
  Age: 23 Year
  Sex: Female

DRUGS (4)
  1. DUPIXENT [Suspect]
     Active Substance: DUPILUMAB
     Indication: Dermatitis atopic
     Dosage: 300 MG, QOW
     Route: 058
     Dates: start: 20220114
  2. CALCIUM CARBONATE [Concomitant]
     Active Substance: CALCIUM CARBONATE
  3. VITAMINS [Concomitant]
     Active Substance: VITAMINS
     Dosage: UNK, QD
  4. VITAMIN D3 [Concomitant]
     Active Substance: CHOLECALCIFEROL

REACTIONS (6)
  - Pruritus [Not Recovered/Not Resolved]
  - Erythema [Unknown]
  - Skin exfoliation [Unknown]
  - Rash macular [Unknown]
  - Dry eye [Unknown]
  - Conjunctivitis [Unknown]
